FAERS Safety Report 12109834 (Version 1)
Quarter: 2016Q1

REPORT INFORMATION
  Report Type: Spontaneous
  Country: US (occurrence: US)
  Receive Date: 20160224
  Receipt Date: 20160224
  Transmission Date: 20160526
  Serious: No
  Sender: FDA-Public Use
  Company Number: US-PFIZER INC-2016053073

PATIENT
  Age: 59 Year

DRUGS (3)
  1. ZOCOR [Suspect]
     Active Substance: SIMVASTATIN
  2. LIPITOR [Suspect]
     Active Substance: ATORVASTATIN CALCIUM
  3. CRESTOR [Suspect]
     Active Substance: ROSUVASTATIN CALCIUM

REACTIONS (1)
  - Drug hypersensitivity [Unknown]
